FAERS Safety Report 5157271-6 (Version None)
Quarter: 2006Q4

REPORT INFORMATION
  Report Type: 
  Country: None (occurrence: None)
  Receive Date: 20061127
  Receipt Date: 20061114
  Transmission Date: 20070319
  Serious: Yes (Other)
  Sender: FDA-Public Use
  Company Number: PHBS2006JP17845

PATIENT

DRUGS (2)
  1. LUDIOMIL [Suspect]
     Indication: DEPRESSION
     Route: 048
  2. PAXIL [Concomitant]
     Indication: DEPRESSION
     Route: 048

REACTIONS (1)
  - HEPATIC STEATOSIS [None]
